FAERS Safety Report 9197549 (Version 1)
Quarter: 2013Q1

REPORT INFORMATION
  Report Type: Spontaneous
  Country: GB (occurrence: GB)
  Receive Date: 20130328
  Receipt Date: 20130328
  Transmission Date: 20140127
  Serious: Yes (Other)
  Sender: FDA-Public Use
  Company Number: GB-GLAXOSMITHKLINE-B0877087A

PATIENT
  Age: 36 Year
  Sex: Male

DRUGS (1)
  1. SEROXAT [Suspect]
     Indication: DEPRESSION
     Dosage: 10MG PER DAY
     Route: 048
     Dates: start: 2010

REACTIONS (10)
  - Drug dependence [Not Recovered/Not Resolved]
  - Tremor [Not Recovered/Not Resolved]
  - Panic attack [Not Recovered/Not Resolved]
  - Loss of employment [Not Recovered/Not Resolved]
  - Aggression [Not Recovered/Not Resolved]
  - Muscle spasms [Not Recovered/Not Resolved]
  - Abnormal dreams [Not Recovered/Not Resolved]
  - Anger [Not Recovered/Not Resolved]
  - Asocial behaviour [Not Recovered/Not Resolved]
  - Paraesthesia [Not Recovered/Not Resolved]
